FAERS Safety Report 16336095 (Version 3)
Quarter: 2019Q4

REPORT INFORMATION
  Report Type: Spontaneous
  Country: US (occurrence: US)
  Receive Date: 20190521
  Receipt Date: 20191015
  Transmission Date: 20200122
  Serious: Yes (Life-Threatening, Hospitalization, Other)
  Sender: FDA-Public Use
  Company Number: US-LUPIN PHARMACEUTICALS INC.-2019-03020

PATIENT
  Age: 57 Year
  Sex: Male

DRUGS (16)
  1. MORPHINE SULPHATE EXTENDED RELEASE TABLET [Interacting]
     Active Substance: MORPHINE SULFATE
     Indication: NECK PAIN
     Dosage: 60 MILLIGRAM, BID, AS NEEDED
     Route: 065
  2. GABAPENTIN. [Interacting]
     Active Substance: GABAPENTIN
     Indication: BACK PAIN
     Dosage: 300 UNK (RESTARTED)
     Route: 065
  3. GABAPENTIN. [Interacting]
     Active Substance: GABAPENTIN
     Dosage: 600 MILLIGRAM, TID, DOSE INCREASED (EVERY 8 HOURS)
     Route: 065
  4. MORPHINE SULPHATE EXTENDED RELEASE TABLET [Interacting]
     Active Substance: MORPHINE SULFATE
     Indication: BACK PAIN
     Dosage: UNK (TOOK EXTRA DOSE OF 60 MG EXTENDED RELEASE MORPHINE)
     Route: 065
  5. METFORMIN [Concomitant]
     Active Substance: METFORMIN HYDROCHLORIDE
     Indication: TYPE 2 DIABETES MELLITUS
     Dosage: UNK
     Route: 065
  6. OXYCODONE AND ACETAMINOPHEN [Interacting]
     Active Substance: ACETAMINOPHEN\OXYCODONE HYDROCHLORIDE
     Indication: BACK PAIN
     Dosage: UNK UNK, QID(10/325 MG), AS NEEDED
     Route: 065
  7. INSULIN [Concomitant]
     Active Substance: INSULIN NOS
     Indication: TYPE 2 DIABETES MELLITUS
     Dosage: UNK (WITH MEALS)
     Route: 065
  8. LEVOTHYROXINE. [Concomitant]
     Active Substance: LEVOTHYROXINE
     Indication: PRODUCT USED FOR UNKNOWN INDICATION
     Dosage: UNK
     Route: 065
  9. VALSARTAN. [Concomitant]
     Active Substance: VALSARTAN
     Indication: HYPERTENSION
     Dosage: UNK
     Route: 065
  10. OMEPRAZOLE. [Concomitant]
     Active Substance: OMEPRAZOLE
     Indication: GASTROOESOPHAGEAL REFLUX DISEASE
     Dosage: UNK
     Route: 065
  11. NIACIN. [Concomitant]
     Active Substance: NIACIN
     Indication: HYPERLIPIDAEMIA
     Dosage: UNK
     Route: 065
  12. GABAPENTIN. [Suspect]
     Active Substance: GABAPENTIN
     Indication: NECK PAIN
     Dosage: 1000 MILLIGRAM, TID, AS NEEDED (WITHDRWAN)
     Route: 065
  13. OXYCODONE AND ACETAMINOPHEN [Interacting]
     Active Substance: ACETAMINOPHEN\OXYCODONE HYDROCHLORIDE
     Indication: NECK PAIN
     Dosage: UNK UNK, TID (10/325 MG), AS NEEDED
     Route: 065
  14. OMEPRAZOLE. [Concomitant]
     Active Substance: OMEPRAZOLE
     Dosage: 40 MILLIGRAM, IN THE MORNING
     Route: 065
  15. VALSARTAN. [Concomitant]
     Active Substance: VALSARTAN
     Dosage: 160 MILLIGRAM, QD
     Route: 048
  16. LEVOTHYROXINE. [Concomitant]
     Active Substance: LEVOTHYROXINE
     Dosage: 1000 MICROGRAM, QD
     Route: 048

REACTIONS (18)
  - Medication error [Unknown]
  - Drug interaction [Unknown]
  - Mental status changes [Recovered/Resolved]
  - Acute kidney injury [Recovered/Resolved]
  - Acute respiratory failure [Recovered/Resolved]
  - Confusional state [Unknown]
  - Encephalopathy [Recovered/Resolved]
  - Dyskinesia [Unknown]
  - Withdrawal syndrome [Recovered/Resolved]
  - Overdose [Unknown]
  - Agitation [Recovered/Resolved]
  - Lethargy [Unknown]
  - Pyrexia [Unknown]
  - Psychomotor hyperactivity [Recovered/Resolved]
  - Respiratory acidosis [Recovered/Resolved]
  - Blood pressure diastolic decreased [Unknown]
  - Restlessness [Unknown]
  - Moaning [Not Recovered/Not Resolved]
